FAERS Safety Report 6911637-X (Version None)
Quarter: 2010Q3

REPORT INFORMATION
  Report Type: 
  Country: None (occurrence: None)
  Receive Date: 20100806
  Receipt Date: 20100723
  Transmission Date: 20110219
  Serious: Yes (Other)
  Sender: FDA-Public Use
  Company Number: FR-GENENTECH-304774

PATIENT
  Age: 52 Year
  Sex: Male

DRUGS (1)
  1. XOLAIR [Suspect]
     Indication: ASTHMA
     Dosage: 300 MG, QD
     Route: 058
     Dates: start: 20100603

REACTIONS (5)
  - ANAPHYLACTIC REACTION [None]
  - LIP SWELLING [None]
  - OROPHARYNGEAL DISCOMFORT [None]
  - PRURITUS [None]
  - RASH PAPULAR [None]
